FAERS Safety Report 4544887-0 (Version None)
Quarter: 2005Q1

REPORT INFORMATION
  Report Type: 
  Country: None (occurrence: None)
  Receive Date: 20050104
  Receipt Date: 20041222
  Transmission Date: 20050727
  Serious: Yes (Hospitalization)
  Sender: FDA-Public Use
  Company Number: 25902

PATIENT
  Age: 79 Year
  Sex: Male

DRUGS (4)
  1. FLECAINIDE ACETATE [Suspect]
     Dosage: ORAL
     Route: 048
     Dates: start: 19950101, end: 19970901
  2. SILOMAT             (CLOBUTINOL HYDROCHLORIDE) [Concomitant]
  3. RAMIPRIL [Concomitant]
  4. CETIRIZINE HCL [Concomitant]

REACTIONS (2)
  - ASTHENIA [None]
  - INTERSTITIAL LUNG DISEASE [None]
